FAERS Safety Report 4801865-1 (Version None)
Quarter: 2005Q4

REPORT INFORMATION
  Report Type: 
  Country: None (occurrence: None)
  Receive Date: 20051011
  Receipt Date: 20050929
  Transmission Date: 20060501
  Serious: Yes (Other)
  Sender: FDA-Public Use
  Company Number: 2005135688

PATIENT
  Sex: Male

DRUGS (1)
  1. NEOSPORIN [Suspect]
     Indication: SKIN INJURY
     Dosage: A LITTLE BIT ONCE, TOPICAL
     Route: 061
     Dates: start: 20050929, end: 20050929

REACTIONS (2)
  - PHARYNGEAL OEDEMA [None]
  - SWELLING FACE [None]
